FAERS Safety Report 18199858 (Version 1)
Quarter: 2020Q3

REPORT INFORMATION
  Report Type: Spontaneous
  Country: US (occurrence: US)
  Receive Date: 20200826
  Receipt Date: 20200826
  Transmission Date: 20201103
  Serious: Yes (Hospitalization)
  Sender: FDA-Public Use
  Company Number: NVSC2020US235896

PATIENT
  Age: 18 Year
  Sex: Male

DRUGS (1)
  1. DABRAFENIB [Suspect]
     Active Substance: DABRAFENIB
     Indication: LANGERHANS^ CELL HISTIOCYTOSIS
     Dosage: UNK
     Route: 065

REACTIONS (5)
  - Headache [Recovering/Resolving]
  - Eye pain [Recovering/Resolving]
  - Product use in unapproved indication [Unknown]
  - Necrotising myositis [Recovering/Resolving]
  - Vision blurred [Recovering/Resolving]
